FAERS Safety Report 12890267 (Version 1)
Quarter: 2016Q4

REPORT INFORMATION
  Report Type: Spontaneous
  Country: US (occurrence: US)
  Receive Date: 20161027
  Receipt Date: 20161027
  Transmission Date: 20170207
  Serious: Yes (Hospitalization, Disabling)
  Sender: FDA-Public Use
  Company Number: US-ACTELION-A-NJ2016-144430

PATIENT
  Age: 17 Month
  Sex: Female

DRUGS (2)
  1. TRACLEER [Suspect]
     Active Substance: BOSENTAN
     Indication: PULMONARY HYPERTENSION
     Dosage: 15.625 MG, BID
     Route: 048
     Dates: start: 201601
  2. TRACLEER [Suspect]
     Active Substance: BOSENTAN
     Dosage: 15.6 MG, QD
     Route: 048
     Dates: start: 201511, end: 201601

REACTIONS (5)
  - Abdominal incarcerated hernia [Recovering/Resolving]
  - Peritonitis [Recovering/Resolving]
  - Faeces discoloured [Recovering/Resolving]
  - Diaphragmatic hernia, obstructive [Recovering/Resolving]
  - Vomiting [Recovering/Resolving]
